FAERS Safety Report 6979263-4 (Version None)
Quarter: 2010Q3

REPORT INFORMATION
  Report Type: 
  Country: None (occurrence: None)
  Receive Date: 20100913
  Receipt Date: 20100831
  Transmission Date: 20110219
  Serious: Yes (Death, Hospitalization)
  Sender: FDA-Public Use
  Company Number: JP-AMGEN-QUU428597

PATIENT
  Sex: Female
  Weight: 35 kg

DRUGS (11)
  1. ENBREL [Suspect]
     Indication: RHEUMATOID ARTHRITIS
     Route: 058
     Dates: start: 20100707, end: 20100721
  2. VASOLAN [Concomitant]
     Indication: ATRIAL TACHYCARDIA
     Route: 042
     Dates: start: 20100603, end: 20100722
  3. BEPRIDIL [Concomitant]
     Indication: ATRIAL TACHYCARDIA
     Route: 042
     Dates: start: 20100605, end: 20100722
  4. UBRETID [Concomitant]
     Indication: URINARY RETENTION
     Route: 042
     Dates: start: 20100622, end: 20100722
  5. LANTUS [Concomitant]
     Indication: DIABETES MELLITUS
     Dosage: UNKNOWN/DAY
     Route: 058
     Dates: start: 20100605, end: 20100722
  6. METHYCOBAL [Concomitant]
     Indication: NERVOUSNESS
     Route: 042
     Dates: start: 20100603, end: 20100722
  7. PREDONINE [Concomitant]
     Indication: RHEUMATOID ARTHRITIS
     Route: 042
     Dates: start: 20100702, end: 20100722
  8. ALFAROL [Concomitant]
     Indication: OSTEOPOROSIS
     Route: 042
     Dates: start: 20100603, end: 20100722
  9. PROMAC [Concomitant]
     Indication: GASTRITIS
     Route: 042
     Dates: start: 20100603, end: 20100722
  10. BIOFERMIN [Concomitant]
     Indication: GASTROINTESTINAL DISORDER
     Route: 042
     Dates: start: 20100603, end: 20100722
  11. BISOPROLOL FUMARATE [Concomitant]
     Indication: ATRIAL TACHYCARDIA
     Route: 042
     Dates: start: 20100603, end: 20100722

REACTIONS (3)
  - PROGRESSIVE MULTIFOCAL LEUKOENCEPHALOPATHY [None]
  - PYREXIA [None]
  - SEPSIS [None]
